FAERS Safety Report 4943629-4 (Version None)
Quarter: 2006Q1

REPORT INFORMATION
  Report Type: 
  Country: None (occurrence: None)
  Receive Date: 20060310
  Receipt Date: 20060228
  Transmission Date: 20060701
  Serious: Yes (Other)
  Sender: FDA-Public Use
  Company Number: B0413280A

PATIENT
  Age: 39 Year
  Sex: Female

DRUGS (10)
  1. PAXIL [Suspect]
     Indication: BORDERLINE PERSONALITY DISORDER
     Dosage: 2 TABLET / PER DAY / ORAL
     Route: 048
  2. QUETIAPINE FUMARATE [Concomitant]
  3. NIRAZEPAM [Concomitant]
  4. METHOTRIMEPRAZINE [Concomitant]
  5. VITAMIN A [Concomitant]
  6. BROMAZEPAM [Concomitant]
  7. DIHYDROERGOTAMINE MESYLATE [Concomitant]
  8. SENNOSIDE A + SENNOSIDE B [Concomitant]
  9. SODIUM PICOSULPHATE [Concomitant]
  10. ALOSENN [Concomitant]

REACTIONS (5)
  - COORDINATION ABNORMAL [None]
  - DYSKINESIA [None]
  - EXTRAPYRAMIDAL DISORDER [None]
  - ILLUSION [None]
  - MOVEMENT DISORDER [None]
